FAERS Safety Report 23551870 (Version 1)
Quarter: 2024Q1

REPORT INFORMATION
  Report Type: Spontaneous
  Country: US (occurrence: US)
  Receive Date: 20240222
  Receipt Date: 20240222
  Transmission Date: 20240409
  Serious: Yes (Other)
  Sender: FDA-Public Use
  Company Number: US-APOTEX-2024AP002472

PATIENT
  Sex: Female

DRUGS (22)
  1. TRAMADOL [Suspect]
     Active Substance: TRAMADOL\TRAMADOL HYDROCHLORIDE
     Indication: Axillary pain
     Dosage: 50 MILLIGRAM, QID (EVERY 8 HOURS) AS NEEDED
     Route: 065
  2. TRAMADOL [Suspect]
     Active Substance: TRAMADOL\TRAMADOL HYDROCHLORIDE
     Indication: Neck pain
  3. TRAMADOL [Suspect]
     Active Substance: TRAMADOL\TRAMADOL HYDROCHLORIDE
     Indication: Back pain
  4. METHADONE [Suspect]
     Active Substance: METHADONE HYDROCHLORIDE
     Indication: Pain
     Dosage: 10 MILLIGRAM, QID (EVERY 8 HOURS)
     Route: 065
  5. GABAPENTIN [Concomitant]
     Active Substance: GABAPENTIN
     Indication: Axillary pain
     Dosage: 300 MILLIGRAM, TID (EVERY 8 HOURS) AS NEEDED
     Route: 065
  6. GABAPENTIN [Concomitant]
     Active Substance: GABAPENTIN
     Indication: Neck pain
  7. GABAPENTIN [Concomitant]
     Active Substance: GABAPENTIN
     Indication: Back pain
  8. DULOXETINE [Concomitant]
     Active Substance: DULOXETINE
     Indication: Axillary pain
     Dosage: 60 MILLIGRAM, QD
     Route: 065
  9. DULOXETINE [Concomitant]
     Active Substance: DULOXETINE
     Indication: Myofascial pain syndrome
  10. DULOXETINE [Concomitant]
     Active Substance: DULOXETINE
     Indication: Back pain
  11. MORPHINE [Concomitant]
     Active Substance: MORPHINE
     Indication: Axillary pain
     Dosage: 30 MILLIGRAM, Q.12H
     Route: 065
  12. MORPHINE [Concomitant]
     Active Substance: MORPHINE
     Indication: Neck pain
     Dosage: 30 MILLIGRAM, TID (EVERY 8 HOURS)
     Route: 065
  13. MORPHINE [Concomitant]
     Active Substance: MORPHINE
     Indication: Back pain
  14. MORPHINE [Concomitant]
     Active Substance: MORPHINE
     Indication: Axillary pain
     Dosage: 7.5 MILLIGRAM, Q.4H. AS NEEDED
     Route: 065
  15. MORPHINE [Concomitant]
     Active Substance: MORPHINE
     Indication: Neck pain
  16. MORPHINE [Concomitant]
     Active Substance: MORPHINE
     Indication: Back pain
  17. FENTANYL [Concomitant]
     Active Substance: FENTANYL\FENTANYL CITRATE
     Indication: Axillary pain
     Route: 065
  18. FENTANYL [Concomitant]
     Active Substance: FENTANYL\FENTANYL CITRATE
     Indication: Neck pain
  19. FENTANYL [Concomitant]
     Active Substance: FENTANYL\FENTANYL CITRATE
     Indication: Back pain
  20. OXYCODONE [Concomitant]
     Active Substance: OXYCODONE\OXYCODONE HYDROCHLORIDE
     Indication: Axillary pain
     Dosage: 15 MILLIGRAM, Q.4H. AS NEEDED
     Route: 065
  21. OXYCODONE [Concomitant]
     Active Substance: OXYCODONE\OXYCODONE HYDROCHLORIDE
     Indication: Neck pain
  22. OXYCODONE [Concomitant]
     Active Substance: OXYCODONE\OXYCODONE HYDROCHLORIDE
     Indication: Back pain

REACTIONS (1)
  - Electrocardiogram QT prolonged [Recovering/Resolving]
